FAERS Safety Report 4436654-3 (Version None)
Quarter: 2004Q3

REPORT INFORMATION
  Report Type: 
  Country: None (occurrence: None)
  Receive Date: 20040830
  Receipt Date: 20040728
  Transmission Date: 20050211
  Serious: Yes (Hospitalization)
  Sender: FDA-Public Use
  Company Number: US-BRISTOL-MYERS SQUIBB COMPANY-12653556

PATIENT
  Age: 20 Year
  Sex: Male
  Weight: 133 kg

DRUGS (7)
  1. ABILIFY [Suspect]
     Indication: PSYCHOTIC DISORDER
     Route: 048
     Dates: start: 20030103, end: 20030113
  2. GEODON [Concomitant]
  3. LITHIUM [Concomitant]
  4. PROZAC [Concomitant]
  5. RISPERDAL [Concomitant]
  6. SERZONE [Concomitant]
  7. ZYPREXA [Concomitant]

REACTIONS (3)
  - HALLUCINATION, AUDITORY [None]
  - PSYCHOTIC DISORDER [None]
  - SUICIDAL IDEATION [None]
